FAERS Safety Report 25068074 (Version 1)
Quarter: 2025Q1

REPORT INFORMATION
  Report Type: Spontaneous
  Country: GB (occurrence: GB)
  Receive Date: 20250312
  Receipt Date: 20250312
  Transmission Date: 20250408
  Serious: Yes (Other)
  Sender: ACCORD
  Company Number: None

PATIENT
  Age: 72 Year
  Sex: Female
  Weight: 74 kg

DRUGS (7)
  1. AMITRIPTYLINE [Suspect]
     Active Substance: AMITRIPTYLINE
     Indication: Product used for unknown indication
     Dates: start: 20250214
  2. LANSOPRAZOLE [Concomitant]
     Active Substance: LANSOPRAZOLE
     Dosage: TAKE ONE ONCE DAILY ON THE DAY WHEN YOU TAKE NA
     Dates: start: 20241223, end: 20250120
  3. NAPROXEN [Concomitant]
     Active Substance: NAPROXEN
     Dosage: TAKE ONE 3 TIMES/DAY
     Dates: start: 20241223, end: 20250106
  4. PREGABALIN [Concomitant]
     Active Substance: PREGABALIN
     Dosage: TAKE ONE CAPSULE TWICE A DAY
     Dates: start: 20250214
  5. BEMPEDOIC ACID [Concomitant]
     Active Substance: BEMPEDOIC ACID
     Dates: start: 20240819
  6. GABAPENTIN [Concomitant]
     Active Substance: GABAPENTIN
     Dosage: TAKE ONE 3 TIMES/DAY
     Dates: start: 20241030, end: 20241223
  7. DIAZEPAM [Concomitant]
     Active Substance: DIAZEPAM
     Dosage: TAKE ONE AS NEEDED UP TO THREE TIMES A DAY
     Dates: start: 20241112

REACTIONS (1)
  - Angle closure glaucoma [Recovering/Resolving]
